FAERS Safety Report 12523846 (Version 1)
Quarter: 2016Q3

REPORT INFORMATION
  Report Type: Report from Study
  Country: LB (occurrence: LB)
  Receive Date: 20160704
  Receipt Date: 20160704
  Transmission Date: 20161109
  Serious: Yes (Other)
  Sender: FDA-Public Use
  Company Number: LB-ROCHE-1786985

PATIENT
  Sex: Male
  Weight: 85 kg

DRUGS (5)
  1. OXALIPLATIN. [Concomitant]
     Active Substance: OXALIPLATIN
  2. IRINOTECAN [Concomitant]
     Active Substance: IRINOTECAN
  3. LEUCOVORIN. [Concomitant]
     Active Substance: LEUCOVORIN
  4. AVASTIN [Suspect]
     Active Substance: BEVACIZUMAB
     Indication: COLORECTAL CANCER METASTATIC
     Route: 065
  5. 5-FU [Concomitant]
     Active Substance: FLUOROURACIL

REACTIONS (2)
  - Disease progression [Unknown]
  - Drug ineffective [Unknown]
